FAERS Safety Report 24623776 (Version 1)
Quarter: 2024Q4

REPORT INFORMATION
  Report Type: Spontaneous
  Country: FR (occurrence: FR)
  Receive Date: 20241115
  Receipt Date: 20241115
  Transmission Date: 20250115
  Serious: Yes (Other)
  Sender: AUROBINDO
  Company Number: FR-AFSSAPS-ST2024001668

PATIENT
  Age: 34 Year
  Sex: Female

DRUGS (4)
  1. ACETAMINOPHEN [Suspect]
     Active Substance: ACETAMINOPHEN
     Indication: Influenza like illness
     Dosage: 3 GRAM, ONCE A DAY
     Route: 048
     Dates: start: 20240210, end: 20240214
  2. XYLOMETAZOLINE [Suspect]
     Active Substance: XYLOMETAZOLINE
     Indication: Influenza like illness
     Dosage: 2 DOSAGE FORM, ONCE A DAY
     Route: 045
     Dates: start: 20240210, end: 20240211
  3. PERUBORE INHALATION [Concomitant]
     Indication: Product used for unknown indication
     Dosage: UNK
     Route: 065
     Dates: start: 20240210, end: 20240211
  4. CABERGOLINE [Concomitant]
     Active Substance: CABERGOLINE
     Indication: Product used for unknown indication
     Dosage: UNK
     Route: 065

REACTIONS (1)
  - Acute generalised exanthematous pustulosis [Recovered/Resolved]

NARRATIVE: CASE EVENT DATE: 20240218
